FAERS Safety Report 8320994-1 (Version None)
Quarter: 2012Q2

REPORT INFORMATION
  Report Type: 
  Country: None (occurrence: None)
  Receive Date: 20120430
  Receipt Date: 20120424
  Transmission Date: 20120825
  Serious: Yes (Hospitalization)
  Sender: FDA-Public Use
  Company Number: IT-SANOFI-AVENTIS-2012SA028481

PATIENT
  Age: 66 Year
  Sex: Male

DRUGS (5)
  1. RIFAMPICIN [Concomitant]
     Indication: PROPHYLAXIS
     Route: 048
     Dates: start: 20120403, end: 20120418
  2. METHOTREXATE [Concomitant]
     Indication: PSORIASIS
     Route: 048
  3. FOLINA [Concomitant]
     Indication: PSORIASIS
     Route: 048
  4. RAMIPRIL [Suspect]
     Route: 048
     Dates: start: 20120101, end: 20120417
  5. FUROSEMIDE [Suspect]
     Route: 048
     Dates: start: 20120101, end: 20120412

REACTIONS (1)
  - LICHENOID KERATOSIS [None]
